FAERS Safety Report 18657842 (Version 1)
Quarter: 2020Q4

REPORT INFORMATION
  Report Type: Report from Study
  Country: US (occurrence: US)
  Receive Date: 20201223
  Receipt Date: 20201223
  Transmission Date: 20210114
  Serious: Yes (Hospitalization)
  Sender: FDA-Public Use
  Company Number: US-EISAI MEDICAL RESEARCH-EC-2020-085687

PATIENT
  Age: 74 Year
  Sex: Male

DRUGS (2)
  1. LENVIMA [Suspect]
     Active Substance: LENVATINIB
     Indication: THYROID CANCER
     Route: 048
     Dates: start: 2020
  2. LENVIMA [Suspect]
     Active Substance: LENVATINIB
     Indication: THYROID NEOPLASM
     Route: 048
     Dates: start: 20201106, end: 2020

REACTIONS (2)
  - Blood pressure increased [Unknown]
  - Confusional state [Unknown]

NARRATIVE: CASE EVENT DATE: 20201218
